FAERS Safety Report 9081993 (Version 1)
Quarter: 2013Q1

REPORT INFORMATION
  Report Type: Spontaneous
  Country: US (occurrence: US)
  Receive Date: 20130131
  Receipt Date: 20130131
  Transmission Date: 20140127
  Serious: Yes (Disabling)
  Sender: FDA-Public Use
  Company Number: US-JNJFOC-20121111902

PATIENT
  Age: 77 Year
  Sex: Male
  Weight: 69.4 kg

DRUGS (11)
  1. SANDOZ FENTANYL TRANSDERMAL SYSTEM [Suspect]
     Indication: BACK PAIN
     Dosage: 100 UG/HR + 100 UG/HR EVERY 48 HOURS
     Route: 062
     Dates: start: 20121019
  2. FENTANYL TRANSDERMAL SYSTEM [Suspect]
     Indication: BACK PAIN
     Route: 062
     Dates: start: 2008
  3. METOPROLOL [Concomitant]
     Indication: BLOOD PRESSURE
     Route: 065
  4. NEXIUM [Concomitant]
     Indication: GASTRITIS
     Route: 065
  5. NEURONTIN [Concomitant]
     Indication: PAIN
     Route: 065
     Dates: start: 2009
  6. FISH OIL [Concomitant]
     Indication: ARTERIOSCLEROSIS
     Route: 065
  7. ASPIRIN [Concomitant]
     Indication: CARDIAC DISORDER
     Route: 048
     Dates: start: 2010
  8. MORPHINE [Concomitant]
     Indication: PAIN
     Dosage: AS NEEDED
     Route: 065
     Dates: start: 2010
  9. FENTANYL (WATSON) [Concomitant]
     Indication: PAIN
     Route: 065
     Dates: end: 20121019
  10. TEMAZEPAM [Concomitant]
     Indication: SLEEP DISORDER
  11. DIAZEPAM [Concomitant]
     Indication: PRODUCT USED FOR UNKNOWN INDICATION

REACTIONS (5)
  - Spinal column stenosis [Unknown]
  - Back pain [Unknown]
  - Osteoarthritis [Unknown]
  - Drug ineffective [Unknown]
  - Pruritus [Unknown]
